FAERS Safety Report 17333324 (Version 1)
Quarter: 2020Q1

REPORT INFORMATION
  Report Type: Spontaneous
  Country: ES (occurrence: ES)
  Receive Date: 20200128
  Receipt Date: 20200128
  Transmission Date: 20200409
  Serious: Yes (Other)
  Sender: FDA-Public Use
  Company Number: ES-MYLANLABS-2020M1009936

PATIENT
  Age: 74 Year
  Sex: Female

DRUGS (1)
  1. PREGABALIN. [Suspect]
     Active Substance: PREGABALIN
     Indication: BACK PAIN
     Dosage: UNK UNK, UNK
     Route: 065

REACTIONS (5)
  - Annular elastolytic giant cell granuloma [Recovered/Resolved]
  - Perivascular dermatitis [Recovered/Resolved]
  - Granuloma [Recovered/Resolved]
  - Rash pruritic [Recovered/Resolved]
  - Granuloma annulare [Recovered/Resolved]
